FAERS Safety Report 8211109-9 (Version None)
Quarter: 2012Q1

REPORT INFORMATION
  Report Type: 
  Country: None (occurrence: None)
  Receive Date: 20120315
  Receipt Date: 20120313
  Transmission Date: 20120608
  Serious: Yes (Other)
  Sender: FDA-Public Use
  Company Number: PHHY2012NL021764

PATIENT
  Sex: Male

DRUGS (2)
  1. ZOMETA [Suspect]
     Dosage: 4 MG/100 ML 1X PER 28
     Route: 042
     Dates: start: 20120214
  2. ZOMETA [Suspect]
     Indication: MULTIPLE MYELOMA
     Dosage: 4 MG/100 ML 1X PER 28
     Route: 042
     Dates: start: 20110727

REACTIONS (2)
  - HERPES ZOSTER [None]
  - PNEUMONIA [None]
